FAERS Safety Report 5683900-4 (Version None)
Quarter: 2008Q1

REPORT INFORMATION
  Report Type: 
  Country: None (occurrence: None)
  Receive Date: 20080327
  Receipt Date: 20080327
  Transmission Date: 20080703
  Serious: Yes (Hospitalization)
  Sender: FDA-Public Use
  Company Number: None

PATIENT
  Sex: Male
  Weight: 70 kg

DRUGS (1)
  1. ALEMTUZUMIB [Suspect]
     Indication: T-CELL LYMPHOMA
     Dates: start: 20080204, end: 20080307

REACTIONS (3)
  - INADEQUATE ANALGESIA [None]
  - NEURALGIA [None]
  - SOMNOLENCE [None]
